FAERS Safety Report 6290778-7 (Version None)
Quarter: 2009Q3

REPORT INFORMATION
  Report Type: 
  Country: None (occurrence: None)
  Receive Date: 20090729
  Receipt Date: 20090729
  Transmission Date: 20100115
  Serious: Yes (Other)
  Sender: FDA-Public Use
  Company Number: None

PATIENT
  Age: 63 Year
  Sex: Female
  Weight: 52.6173 kg

DRUGS (1)
  1. LIPITOR [Suspect]
     Indication: HYPERLIPIDAEMIA
     Dosage: 10 1XDAY PO
     Route: 048

REACTIONS (5)
  - ARTHRALGIA [None]
  - BLOOD CHOLESTEROL INCREASED [None]
  - MUSCULOSKELETAL STIFFNESS [None]
  - NO THERAPEUTIC RESPONSE [None]
  - VERTIGO [None]
